FAERS Safety Report 7960227-9 (Version None)
Quarter: 2011Q4

REPORT INFORMATION
  Report Type: 
  Country: None (occurrence: None)
  Receive Date: 20111206
  Receipt Date: 20111128
  Transmission Date: 20120403
  Serious: No
  Sender: FDA-Public Use
  Company Number: US-B.I. PHARMACEUTICALS,INC./RIDGEFIELD-2011-BP-26955BP

PATIENT
  Age: 75 Year
  Sex: Male

DRUGS (5)
  1. CARDIZEM [Concomitant]
     Indication: ATRIAL FIBRILLATION
     Route: 048
  2. CARDURA [Concomitant]
     Indication: HYPERTENSION
     Route: 048
  3. TENORMIN [Concomitant]
     Indication: HYPERTENSION
     Route: 048
  4. PRADAXA [Suspect]
     Indication: ATRIAL FIBRILLATION
     Dosage: 150 MG
     Route: 048
     Dates: start: 20110628
  5. MICARDIS [Concomitant]
     Indication: HYPERTENSION
     Route: 048

REACTIONS (2)
  - HAEMORRHOIDS [None]
  - CONTUSION [None]
